FAERS Safety Report 5924040-6 (Version None)
Quarter: 2008Q4

REPORT INFORMATION
  Report Type: 
  Country: None (occurrence: None)
  Receive Date: 20081020
  Receipt Date: 20081013
  Transmission Date: 20090506
  Serious: Yes (Hospitalization, Other)
  Sender: FDA-Public Use
  Company Number: PHBS2008US06027

PATIENT
  Age: 65 Year
  Sex: Male

DRUGS (7)
  1. IMATINIB MESYLATE [Suspect]
     Indication: NEPHROGENIC SYSTEMIC FIBROSIS
     Dosage: 400MG/DAY
     Route: 048
     Dates: start: 20061201, end: 20070101
  2. IMATINIB MESYLATE [Suspect]
     Dosage: 600MG/DAY
     Route: 048
     Dates: start: 20070101, end: 20070201
  3. IMATINIB MESYLATE [Suspect]
     Dosage: 600MG/DAY
     Route: 048
  4. IMATINIB MESYLATE [Suspect]
     Dosage: 400MG/DAY
     Route: 048
     Dates: start: 20070501, end: 20070101
  5. WARFARIN SODIUM [Concomitant]
  6. PERITONEAL DIALYSIS [Concomitant]
  7. HEMODIALYSIS [Concomitant]

REACTIONS (4)
  - ABDOMINAL HERNIA [None]
  - GASTROINTESTINAL HAEMORRHAGE [None]
  - INTERNATIONAL NORMALISED RATIO ABNORMAL [None]
  - SURGERY [None]
